FAERS Safety Report 8260357-0 (Version None)
Quarter: 2012Q2

REPORT INFORMATION
  Report Type: 
  Country: None (occurrence: None)
  Receive Date: 20120404
  Receipt Date: 20120402
  Transmission Date: 20120825
  Serious: Yes (Hospitalization)
  Sender: FDA-Public Use
  Company Number: CA-ROCHE-1056031

PATIENT
  Age: 59 Year
  Sex: Male

DRUGS (3)
  1. ALIMTA [Concomitant]
     Route: 042
  2. AVASTIN [Suspect]
     Indication: PRODUCT USED FOR UNKNOWN INDICATION
     Route: 042
  3. CARBOPLATIN [Concomitant]
     Route: 042

REACTIONS (5)
  - MALIGNANT HYPERTENSION [None]
  - MICROANGIOPATHY [None]
  - NERVOUS SYSTEM DISORDER [None]
  - RENAL DISORDER [None]
  - BLOOD CREATINE INCREASED [None]
